FAERS Safety Report 9461597 (Version 1)
Quarter: 2013Q3

REPORT INFORMATION
  Report Type: Spontaneous
  Country: US (occurrence: US)
  Receive Date: 20130816
  Receipt Date: 20130816
  Transmission Date: 20140515
  Serious: Yes (Hospitalization)
  Sender: FDA-Public Use
  Company Number: US-AMGEN-USASP2013056454

PATIENT
  Age: 53 Year
  Sex: Male

DRUGS (2)
  1. ENBREL [Suspect]
     Indication: ANKYLOSING SPONDYLITIS
     Dosage: UNK
     Route: 065
     Dates: start: 20100601
  2. ENBREL [Suspect]
     Indication: RHEUMATOID ARTHRITIS

REACTIONS (3)
  - Dehydration [Recovered/Resolved]
  - Gastrointestinal infection [Recovered/Resolved]
  - Fatigue [Not Recovered/Not Resolved]
